FAERS Safety Report 25222770 (Version 2)
Quarter: 2025Q2

REPORT INFORMATION
  Report Type: Spontaneous
  Country: US (occurrence: US)
  Receive Date: 20250422
  Receipt Date: 20250424
  Transmission Date: 20250716
  Serious: No
  Sender: BAXTER
  Company Number: US-BAXTER-2025BAX014209

PATIENT

DRUGS (1)
  1. PROPOFOL [Suspect]
     Active Substance: PROPOFOL
     Route: 042

REACTIONS (2)
  - Sedation complication [Unknown]
  - Device issue [Unknown]
